FAERS Safety Report 15438781 (Version 1)
Quarter: 2018Q3

REPORT INFORMATION
  Report Type: Spontaneous
  Country: US (occurrence: US)
  Receive Date: 20180928
  Receipt Date: 20180928
  Transmission Date: 20181010
  Serious: Yes (Other)
  Sender: FDA-Public Use
  Company Number: US-EMD SERONO-7142433

PATIENT
  Sex: Male
  Weight: 72 kg

DRUGS (1)
  1. REBIF [Suspect]
     Active Substance: INTERFERON BETA-1A
     Indication: RELAPSING-REMITTING MULTIPLE SCLEROSIS
     Route: 058
     Dates: start: 20110420

REACTIONS (5)
  - Oesophageal mass [Recovered/Resolved]
  - Vision blurred [Not Recovered/Not Resolved]
  - Oesophageal food impaction [Recovered/Resolved]
  - Dysphagia [Recovered/Resolved]
  - Gastrooesophageal reflux disease [Recovered/Resolved]
